FAERS Safety Report 4870029-8 (Version None)
Quarter: 2005Q4

REPORT INFORMATION
  Report Type: 
  Country: None (occurrence: None)
  Receive Date: 20051223
  Receipt Date: 20050711
  Transmission Date: 20060501
  Serious: Yes (Hospitalization)
  Sender: FDA-Public Use
  Company Number: 2005BI010119

PATIENT
  Age: 37 Year
  Sex: Female
  Weight: 79.8331 kg

DRUGS (9)
  1. AVONEX [Suspect]
     Indication: MULTIPLE SCLEROSIS
     Dosage: 30 UG; QW; IM
     Route: 030
     Dates: start: 20040916
  2. NORVASC [Concomitant]
  3. COZAAR [Concomitant]
  4. SYNTHROID [Concomitant]
  5. FUROSEMIDE [Concomitant]
  6. LEVOXYL [Concomitant]
  7. ASPIRIN [Concomitant]
  8. METROPROLOL [Concomitant]
  9. IRON [Concomitant]

REACTIONS (13)
  - ANAEMIA [None]
  - BACK PAIN [None]
  - BREAST PAIN [None]
  - CHEST DISCOMFORT [None]
  - CHEST PAIN [None]
  - DIFFICULTY IN WALKING [None]
  - DYSPNOEA [None]
  - HYPOAESTHESIA [None]
  - INFLUENZA LIKE ILLNESS [None]
  - MYOCARDIAL INFARCTION [None]
  - POST PROCEDURAL COMPLICATION [None]
  - PULMONARY EMBOLISM [None]
  - SENSATION OF HEAVINESS [None]
